FAERS Safety Report 7197645-5 (Version None)
Quarter: 2010Q4

REPORT INFORMATION
  Report Type: 
  Country: None (occurrence: None)
  Receive Date: 20101207
  Receipt Date: 20101202
  Transmission Date: 20110411
  Serious: Yes (Other)
  Sender: FDA-Public Use
  Company Number: A0897465A

PATIENT
  Age: 72 Year
  Sex: Female

DRUGS (1)
  1. UREA PEROXIDE [Suspect]

REACTIONS (7)
  - DEAFNESS UNILATERAL [None]
  - DISCOMFORT [None]
  - EAR DISCOMFORT [None]
  - FEELING ABNORMAL [None]
  - HEARING IMPAIRED [None]
  - INCORRECT DOSE ADMINISTERED [None]
  - TREATMENT NONCOMPLIANCE [None]
